FAERS Safety Report 8436014-4 (Version None)
Quarter: 2012Q2

REPORT INFORMATION
  Report Type: 
  Country: None (occurrence: None)
  Receive Date: 20120614
  Receipt Date: 20120601
  Transmission Date: 20120825
  Serious: Yes (Other)
  Sender: FDA-Public Use
  Company Number: FR-CELGENEUS-056-21880-12060267

PATIENT
  Age: 70 Year
  Sex: Male

DRUGS (4)
  1. REVLIMID [Suspect]
     Indication: MULTIPLE MYELOMA
     Dosage: 25 MILLIGRAM
     Route: 048
  2. ELOTUZUMAB [Suspect]
     Dosage: 10-20 MG/KG
     Route: 041
  3. DEXAMETHASONE [Suspect]
     Indication: MULTIPLE MYELOMA
     Dosage: 5.7143 MILLIGRAM
     Route: 048
  4. ELOTUZUMAB [Suspect]
     Indication: MULTIPLE MYELOMA
     Dosage: 10-20 MG/KG
     Route: 041

REACTIONS (1)
  - TRANSITIONAL CELL CARCINOMA [None]
